APPROVED DRUG PRODUCT: IBUPROFEN
Active Ingredient: IBUPROFEN
Strength: 600MG
Dosage Form/Route: TABLET;ORAL
Application: A078329 | Product #002 | TE Code: AB
Applicant: STRIDES PHARMA GLOBAL PTE LTD
Approved: Feb 5, 2009 | RLD: No | RS: No | Type: RX